FAERS Safety Report 16304474 (Version 1)
Quarter: 2019Q2

REPORT INFORMATION
  Report Type: Spontaneous
  Country: US (occurrence: US)
  Receive Date: 20190510
  Receipt Date: 20190510
  Transmission Date: 20190711
  Serious: Yes (Hospitalization)
  Sender: FDA-Public Use
  Company Number: None

PATIENT
  Age: 65 Year
  Sex: Male
  Weight: 49.9 kg

DRUGS (1)
  1. CLOZAPINE. [Suspect]
     Active Substance: CLOZAPINE
     Route: 048

REACTIONS (8)
  - Blood alkaline phosphatase increased [None]
  - Hepatocellular injury [None]
  - Leukocytosis [None]
  - Splenomegaly [None]
  - Fatigue [None]
  - Blood sodium decreased [None]
  - Alanine aminotransferase increased [None]
  - C-reactive protein increased [None]

NARRATIVE: CASE EVENT DATE: 20190326
